FAERS Safety Report 8759524 (Version 1)
Quarter: 2012Q4

REPORT INFORMATION
  Report Type: 
  Country: US (occurrence: US)
  Receive Date: 20120829
  Receipt Date: 20120829
  Transmission Date: 20130627
  Serious: Yes (Hospitalization)
  Sender: FDA-Public Use
  Company Number: US-SHIRE-ALL1-2012-04026

PATIENT
  Sex: Female
  Weight: 74.83 kg

DRUGS (1)
  1. FOSRENOL [Suspect]
     Indication: HYPERPHOSPHATAEMIA
     Dosage: 4 DF, 1x/day:qd (Four tablets of unknown dose amount taken once daily)
     Route: 048
     Dates: start: 201206

REACTIONS (3)
  - Hospitalisation [Recovered/Resolved]
  - Expired drug administered [Not Recovered/Not Resolved]
  - Blood phosphorus increased [Not Recovered/Not Resolved]
